FAERS Safety Report 14186194 (Version 2)
Quarter: 2017Q4

REPORT INFORMATION
  Report Type: Spontaneous
  Country: TR (occurrence: TR)
  Receive Date: 20171114
  Receipt Date: 20171116
  Transmission Date: 20180321
  Serious: Yes (Death, Hospitalization, Other)
  Sender: FDA-Public Use
  Company Number: TR-009507513-1711TUR005351

PATIENT
  Age: 22 Year
  Sex: Male

DRUGS (13)
  1. DAPTOMYCIN. [Suspect]
     Active Substance: DAPTOMYCIN
     Indication: PYREXIA
  2. LINEZOLID. [Suspect]
     Active Substance: LINEZOLID
     Indication: PYREXIA
     Dosage: 2 X 600 MG
  3. CEFTAZIDIME. [Suspect]
     Active Substance: CEFTAZIDIME
     Indication: CATHETER SITE PAIN
     Dosage: 3 X 2MG/DAY
  4. DAPTOMYCIN. [Suspect]
     Active Substance: DAPTOMYCIN
     Indication: CATHETER SITE PAIN
     Dosage: 1 X 6 MG/KG/DAY
  5. CASPOFUNGIN ACETATE. [Suspect]
     Active Substance: CASPOFUNGIN ACETATE
     Dosage: 70 MG SINGLE LOADING DOSE
  6. CASPOFUNGIN ACETATE. [Suspect]
     Active Substance: CASPOFUNGIN ACETATE
     Dosage: 1 X 50 MG/DAY MAINTENANCE
  7. TIGECYCLINE. [Suspect]
     Active Substance: TIGECYCLINE
     Dosage: 100  MG SINGLE DOSE LOADING
  8. SULFAMETHOXAZOLE (+) TRIMETHOPRIM [Suspect]
     Active Substance: SULFAMETHOXAZOLE\TRIMETHOPRIM
     Indication: CATHETER SITE PAIN
     Dosage: 3 X 5 MG/KG/DAY
  9. CEFTAZIDIME. [Suspect]
     Active Substance: CEFTAZIDIME
     Indication: PYREXIA
  10. IMIPENEM AND CILASTATIN [Suspect]
     Active Substance: CILASTATIN SODIUM\IMIPENEM
     Dosage: 4 X 500 MG/DAY
  11. TIGECYCLINE. [Suspect]
     Active Substance: TIGECYCLINE
     Dosage: 2 X 50 MG/DAY MAINTENANCE
  12. LINEZOLID. [Suspect]
     Active Substance: LINEZOLID
     Indication: FUNGAL INFECTION
  13. SULFAMETHOXAZOLE (+) TRIMETHOPRIM [Suspect]
     Active Substance: SULFAMETHOXAZOLE\TRIMETHOPRIM
     Indication: PYREXIA

REACTIONS (4)
  - Fungal infection [Unknown]
  - Arthritis bacterial [Unknown]
  - Fungaemia [Fatal]
  - Pathogen resistance [Unknown]
